FAERS Safety Report 5699016-7 (Version None)
Quarter: 2008Q2

REPORT INFORMATION
  Report Type: 
  Country: None (occurrence: None)
  Receive Date: 20080408
  Receipt Date: 20061002
  Transmission Date: 20081010
  Serious: No
  Sender: FDA-Public Use
  Company Number: US-BAYER-US-2006-029390

PATIENT
  Age: 33 Year
  Sex: Female
  Weight: 82 kg

DRUGS (2)
  1. ULTRAVIST 300 [Suspect]
     Indication: COMPUTERISED TOMOGRAM ABDOMEN
     Dosage: UNIT DOSE: 150 ML
     Route: 042
     Dates: start: 20060928, end: 20060928
  2. BARO-CAT [Concomitant]
     Indication: COMPUTERISED TOMOGRAM ABDOMEN
     Route: 048
     Dates: start: 20060928, end: 20060928

REACTIONS (4)
  - EYE SWELLING [None]
  - NASAL CONGESTION [None]
  - ORAL PRURITUS [None]
  - SNEEZING [None]
